FAERS Safety Report 20393564 (Version 1)
Quarter: 2022Q1

REPORT INFORMATION
  Report Type: Spontaneous
  Country: ES (occurrence: ES)
  Receive Date: 20220128
  Receipt Date: 20220128
  Transmission Date: 20220423
  Serious: Yes (Life-Threatening, Congenital Anomaly)
  Sender: FDA-Public Use
  Company Number: None

PATIENT
  Age: 64 Year
  Sex: Female
  Weight: 90 kg

DRUGS (3)
  1. RAMIPRIL [Suspect]
     Active Substance: RAMIPRIL
     Dosage: RAMIPRIL RATIOPHARM 5 MG TABLETS, 28 TABLETS
     Route: 065
  2. SIMVASTATIN [Suspect]
     Active Substance: SIMVASTATIN
     Dosage: SIMVASTATIN ALTER 10 MG FILM-COATED TABLETS EFG, 28 TABLETS
  3. RAMIPRIL [Suspect]
     Active Substance: RAMIPRIL
     Dosage: RAMIPRIL ALTER 10 MG TABLETS EFG 28 TABLETS

REACTIONS (2)
  - Conjunctival haemorrhage [Not Recovered/Not Resolved]
  - Retinal vein thrombosis [Not Recovered/Not Resolved]

NARRATIVE: CASE EVENT DATE: 20210601
